FAERS Safety Report 12762895 (Version 5)
Quarter: 2017Q1

REPORT INFORMATION
  Report Type: Spontaneous
  Country: US (occurrence: US)
  Receive Date: 20160920
  Receipt Date: 20170303
  Transmission Date: 20170428
  Serious: Yes (Hospitalization, Other)
  Sender: FDA-Public Use
  Company Number: US-JNJFOC-20160913843

PATIENT
  Age: 80 Year
  Sex: Male
  Weight: 86 kg

DRUGS (32)
  1. NEURONTIN [Concomitant]
     Active Substance: GABAPENTIN
     Route: 048
  2. NITROSTAT [Concomitant]
     Active Substance: NITROGLYCERIN
     Route: 065
  3. PRAVASTATIN. [Concomitant]
     Active Substance: PRAVASTATIN
     Dosage: 1 NIGHTLY
     Route: 065
  4. CARDURA [Concomitant]
     Active Substance: DOXAZOSIN MESYLATE
     Dosage: 1 NIGHTLY
     Route: 048
  5. CENTRUM SILVER [Concomitant]
     Active Substance: MINERALS\VITAMINS
     Dosage: 1 IN AM
     Route: 048
  6. FERROUS SULFATE. [Concomitant]
     Active Substance: FERROUS SULFATE
     Route: 048
  7. ASPIRIN. [Suspect]
     Active Substance: ASPIRIN
     Indication: ANTICOAGULANT THERAPY
     Route: 048
  8. ASPIRIN. [Suspect]
     Active Substance: ASPIRIN
     Indication: ANTICOAGULANT THERAPY
     Dosage: 1 NIGHTLY
     Route: 048
  9. VITAMIN D3 [Concomitant]
     Active Substance: CHOLECALCIFEROL
     Dosage: 1IN AM
     Route: 048
  10. LASIX [Concomitant]
     Active Substance: FUROSEMIDE
     Dosage: 1IN AM
     Route: 048
  11. XARELTO [Suspect]
     Active Substance: RIVAROXABAN
     Indication: CEREBROVASCULAR ACCIDENT PROPHYLAXIS
     Route: 048
  12. INDERAL [Concomitant]
     Active Substance: PROPRANOLOL HYDROCHLORIDE
     Dosage: 1 NIGHTLY
     Route: 048
  13. GARLIC. [Concomitant]
     Active Substance: GARLIC
     Dosage: 1IN AM
     Route: 048
  14. PLAVIX [Suspect]
     Active Substance: CLOPIDOGREL BISULFATE
     Indication: ANTICOAGULANT THERAPY
     Route: 048
  15. NEURONTIN [Concomitant]
     Active Substance: GABAPENTIN
     Route: 048
  16. MESTINON [Concomitant]
     Active Substance: PYRIDOSTIGMINE BROMIDE
     Route: 065
  17. FLORASTOR [Concomitant]
     Active Substance: SACCHAROMYCES CEREVISIAE
     Dosage: 1 NIGHTLY
     Route: 048
  18. PRAVACHOL [Concomitant]
     Active Substance: PRAVASTATIN SODIUM
     Dosage: BEDTIME
     Route: 048
  19. MESTINON [Concomitant]
     Active Substance: PYRIDOSTIGMINE BROMIDE
     Route: 065
  20. AMIODARONE [Concomitant]
     Active Substance: AMIODARONE
     Indication: ATRIAL FIBRILLATION
     Dosage: 1 NIGHTLY
     Route: 048
  21. GARLIC. [Concomitant]
     Active Substance: GARLIC
     Route: 048
  22. SYNTHROID [Concomitant]
     Active Substance: LEVOTHYROXINE SODIUM
     Dosage: 1IN AM
     Route: 048
  23. PROTONIX [Concomitant]
     Active Substance: PANTOPRAZOLE SODIUM
     Dosage: 1IN AM
     Route: 065
  24. TRENTAL [Concomitant]
     Active Substance: PENTOXIFYLLINE
     Dosage: 1 IN AM
     Route: 048
  25. FERROUS SULFATE. [Concomitant]
     Active Substance: FERROUS SULFATE
     Dosage: 1 IN AM
     Route: 048
  26. POTASSIUM CHLORIDE. [Concomitant]
     Active Substance: POTASSIUM CHLORIDE
     Dosage: 1 IN AM
     Route: 065
  27. XARELTO [Suspect]
     Active Substance: RIVAROXABAN
     Indication: ATRIAL FIBRILLATION
     Route: 048
     Dates: start: 2015
  28. XARELTO [Suspect]
     Active Substance: RIVAROXABAN
     Indication: ATRIAL FIBRILLATION
     Route: 048
  29. XARELTO [Suspect]
     Active Substance: RIVAROXABAN
     Indication: CEREBROVASCULAR ACCIDENT PROPHYLAXIS
     Route: 048
     Dates: start: 2015
  30. PLAVIX [Suspect]
     Active Substance: CLOPIDOGREL BISULFATE
     Indication: ANTICOAGULANT THERAPY
     Dosage: 1 NIGHTLY
     Route: 048
     Dates: start: 2016
  31. METAMUCIL [Concomitant]
     Active Substance: PLANTAGO SEED
     Dosage: 1IN AM
     Route: 048
  32. ZYRTEC [Concomitant]
     Active Substance: CETIRIZINE HYDROCHLORIDE
     Dosage: 1 NIGHTLY
     Route: 048

REACTIONS (10)
  - Heart rate decreased [Unknown]
  - Duodenal ulcer haemorrhage [Recovered/Resolved]
  - Decreased appetite [Recovered/Resolved]
  - Chest pain [Unknown]
  - Gastrointestinal angiodysplasia haemorrhagic [Unknown]
  - Haemoptysis [Recovered/Resolved]
  - Nausea [Unknown]
  - Haematoma [Unknown]
  - Weight decreased [Recovered/Resolved]
  - Renal function test abnormal [Recovering/Resolving]

NARRATIVE: CASE EVENT DATE: 2016
